FAERS Safety Report 11221440 (Version 5)
Quarter: 2015Q3

REPORT INFORMATION
  Report Type: Spontaneous
  Country: US (occurrence: US)
  Receive Date: 20150626
  Receipt Date: 20150826
  Transmission Date: 20151125
  Serious: Yes (Death, Other)
  Sender: FDA-Public Use
  Company Number: US-PFIZER INC-2015208548

PATIENT
  Age: 58 Year
  Sex: Male
  Weight: 126 kg

DRUGS (20)
  1. ANUSOL [Concomitant]
     Dosage: UNK
  2. XGEVA [Concomitant]
     Active Substance: DENOSUMAB
     Indication: METASTASES TO BONE
     Dosage: UNK, MONTHLY
     Dates: start: 201502
  3. PROTONIX [Concomitant]
     Active Substance: PANTOPRAZOLE SODIUM
     Dosage: UNK
  4. LORATADINE. [Concomitant]
     Active Substance: LORATADINE
     Dosage: UNK
  5. DEXAMETHASONE. [Concomitant]
     Active Substance: DEXAMETHASONE
     Dosage: UNK
  6. METOLAZONE. [Concomitant]
     Active Substance: METOLAZONE
     Dosage: UNK
  7. ZOFRAN [Concomitant]
     Active Substance: ONDANSETRON HYDROCHLORIDE
     Dosage: UNK
  8. ATIVAN [Concomitant]
     Active Substance: LORAZEPAM
     Dosage: UNK
  9. METHYLPREDNISOLONE. [Concomitant]
     Active Substance: METHYLPREDNISOLONE
     Dosage: UNK
  10. SUTENT [Suspect]
     Active Substance: SUNITINIB MALATE
     Indication: METASTATIC RENAL CELL CARCINOMA
     Dosage: 50 MG, CYCLIC (28 DAYS ON/14 DAYS OFF)
     Dates: start: 20150331
  11. LIDOCAINE. [Concomitant]
     Active Substance: LIDOCAINE
     Dosage: UNK
  12. SIMVASTATIN. [Concomitant]
     Active Substance: SIMVASTATIN
     Dosage: UNK
  13. NORCO [Concomitant]
     Active Substance: ACETAMINOPHEN\HYDROCODONE BITARTRATE
     Dosage: UNK
  14. VITAMIN D [Concomitant]
     Active Substance: CHOLECALCIFEROL
     Dosage: UNK
  15. AMITRIPTYLINE [Concomitant]
     Active Substance: AMITRIPTYLINE
     Dosage: UNK
  16. TOPICAL NITROGLYCERIN [Concomitant]
     Dosage: UNK
  17. MIRALAX [Concomitant]
     Active Substance: POLYETHYLENE GLYCOL 3350
     Dosage: UNK, DAILY
  18. LOVENOX [Concomitant]
     Active Substance: ENOXAPARIN SODIUM
     Dosage: UNK, 2X/DAY
  19. TENORMIN [Concomitant]
     Active Substance: ATENOLOL
     Dosage: UNK
  20. POTASSIUM [Concomitant]
     Active Substance: POTASSIUM
     Dosage: UNK

REACTIONS (19)
  - Faeces discoloured [Recovering/Resolving]
  - Epistaxis [Unknown]
  - Pain in extremity [Unknown]
  - Localised infection [Unknown]
  - Ingrowing nail [Unknown]
  - Rash pruritic [Unknown]
  - Dry skin [Unknown]
  - Nausea [Unknown]
  - Nasopharyngitis [Unknown]
  - Dysgeusia [Unknown]
  - Fatigue [Unknown]
  - Chills [Unknown]
  - Asthenia [Unknown]
  - Anorectal disorder [Not Recovered/Not Resolved]
  - Contusion [Unknown]
  - Carotid artery thrombosis [Fatal]
  - Weight decreased [Unknown]
  - Depression [Unknown]
  - Anaemia [Unknown]

NARRATIVE: CASE EVENT DATE: 2015
